FAERS Safety Report 5032864-5 (Version None)
Quarter: 2006Q2

REPORT INFORMATION
  Report Type: 
  Country: None (occurrence: None)
  Receive Date: 20060622
  Receipt Date: 20060606
  Transmission Date: 20061013
  Serious: Yes (Other)
  Sender: FDA-Public Use
  Company Number: FR-GLAXOSMITHKLINE-B0426503A

PATIENT
  Age: 83 Year
  Sex: Male

DRUGS (2)
  1. AVODART [Suspect]
     Indication: PROSTATIC ADENOMA
     Dosage: .5MG PER DAY
     Route: 048
     Dates: end: 20060301
  2. OMIX [Concomitant]
     Indication: PROSTATIC ADENOMA
     Dates: end: 20060101

REACTIONS (7)
  - ACTIVITIES OF DAILY LIVING IMPAIRED [None]
  - ATROPHY [None]
  - GYNAECOMASTIA [None]
  - LIBIDO DECREASED [None]
  - MYALGIA [None]
  - OBESITY [None]
  - URINARY TRACT PAIN [None]
